FAERS Safety Report 24112972 (Version 3)
Quarter: 2024Q4

REPORT INFORMATION
  Report Type: Spontaneous
  Country: CO (occurrence: CO)
  Receive Date: 20240719
  Receipt Date: 20241004
  Transmission Date: 20250115
  Serious: Yes (Hospitalization, Other)
  Sender: GLAXOSMITHKLINE
  Company Number: CO-GLAXOSMITHKLINE-CO2024AMR089411

PATIENT

DRUGS (2)
  1. MEPOLIZUMAB [Suspect]
     Active Substance: MEPOLIZUMAB
     Indication: Asthma
     Dosage: 100 MG, Q4W, INJECTION
     Route: 042
     Dates: start: 20231118
  2. MEPOLIZUMAB [Suspect]
     Active Substance: MEPOLIZUMAB
     Dosage: 100 MG, MO
     Route: 042
     Dates: end: 20240617

REACTIONS (8)
  - Fall [Not Recovered/Not Resolved]
  - Hip surgery [Recovering/Resolving]
  - Cardiac disorder [Recovered/Resolved]
  - Blood pressure increased [Recovered/Resolved]
  - Pulmonary thrombosis [Recovered/Resolved]
  - Tachycardia [Recovered/Resolved]
  - Asphyxia [Not Recovered/Not Resolved]
  - Bronchitis chronic [Not Recovered/Not Resolved]

NARRATIVE: CASE EVENT DATE: 20240701
